FAERS Safety Report 9364174 (Version 2)
Quarter: 2013Q3

REPORT INFORMATION
  Report Type: Spontaneous
  Country: VE (occurrence: VE)
  Receive Date: 20130624
  Receipt Date: 20130719
  Transmission Date: 20140515
  Serious: Yes (Other)
  Sender: FDA-Public Use
  Company Number: VE-PFIZER INC-2013187160

PATIENT
  Age: 80 Year
  Sex: Male

DRUGS (1)
  1. LIPITOR [Suspect]
     Indication: CORONARY ARTERY OCCLUSION
     Dosage: 80 MG, DAILY
     Route: 048
     Dates: start: 2010

REACTIONS (2)
  - Neoplasm prostate [Recovered/Resolved]
  - Neoplasm prostate [Not Recovered/Not Resolved]
